FAERS Safety Report 24428979 (Version 1)
Quarter: 2024Q4

REPORT INFORMATION
  Report Type: Spontaneous
  Country: CA (occurrence: CA)
  Receive Date: 20241011
  Receipt Date: 20241011
  Transmission Date: 20250115
  Serious: Yes (Other)
  Sender: GALDERMA
  Company Number: CA-GALDERMA-CA2024014758

PATIENT

DRUGS (14)
  1. DOXYCYCLINE [Suspect]
     Active Substance: DOXYCYCLINE
     Indication: Cheilitis
     Dosage: 1 DOSAGE FORM
     Route: 065
  2. DOXYCYCLINE [Suspect]
     Active Substance: DOXYCYCLINE
     Indication: Rosacea
  3. CRISABOROLE [Concomitant]
     Active Substance: CRISABOROLE
     Indication: Dermatitis atopic
     Dosage: UNK, BID
     Route: 065
  4. CRISABOROLE [Concomitant]
     Active Substance: CRISABOROLE
     Indication: Cheilitis
     Dosage: UNK, BID
     Route: 065
  5. HYDROCORTISONE VALERATE [Concomitant]
     Active Substance: HYDROCORTISONE VALERATE
     Indication: Cheilitis
     Dosage: 0.2 PERCENT
     Route: 065
  6. DAPSONE [Concomitant]
     Active Substance: DAPSONE
     Indication: Cheilitis
     Dosage: 5 PERCENT, BID
     Route: 065
  7. ISOTRETINOIN [Concomitant]
     Active Substance: ISOTRETINOIN
     Indication: Cheilitis
     Dosage: 10 MILLIGRAM, QD
     Route: 065
  8. METHOTREXATE SODIUM [Concomitant]
     Active Substance: METHOTREXATE SODIUM
     Indication: Cheilitis
     Route: 065
  9. TACROLIMUS [Concomitant]
     Active Substance: TACROLIMUS
     Indication: Cheilitis
     Route: 061
  10. TACROLIMUS [Concomitant]
     Active Substance: TACROLIMUS
     Indication: Prophylaxis
  11. TACROLIMUS [Concomitant]
     Active Substance: TACROLIMUS
     Indication: Rosacea
  12. TACROLIMUS [Concomitant]
     Active Substance: TACROLIMUS
     Indication: Cheilitis
     Route: 065
  13. TACROLIMUS [Concomitant]
     Active Substance: TACROLIMUS
     Indication: Prophylaxis
  14. TACROLIMUS [Concomitant]
     Active Substance: TACROLIMUS
     Indication: Rosacea

REACTIONS (3)
  - Condition aggravated [Unknown]
  - Drug ineffective for unapproved indication [Recovered/Resolved]
  - Intentional product use issue [Recovered/Resolved]
